FAERS Safety Report 25502478 (Version 1)
Quarter: 2025Q3

REPORT INFORMATION
  Report Type: Spontaneous
  Country: US (occurrence: US)
  Receive Date: 20250702
  Receipt Date: 20250702
  Transmission Date: 20251021
  Serious: No
  Sender: DBL GROUP
  Company Number: US-DBL Pharmaceuticals, Inc.-2179748

PATIENT

DRUGS (7)
  1. METHOCARBAMOL [Suspect]
     Active Substance: METHOCARBAMOL
     Indication: Myalgia
  2. HYDROCODONE BITARTRATE [Suspect]
     Active Substance: HYDROCODONE BITARTRATE
  3. SALONPAS PAIN RELIEF [Suspect]
     Active Substance: MENTHOL\METHYL SALICYLATE
  4. ASPERCREME PAIN RELIEVING [Suspect]
     Active Substance: TROLAMINE SALICYLATE
  5. MELOXICAM [Suspect]
     Active Substance: MELOXICAM
  6. OXYCODONE [Suspect]
     Active Substance: OXYCODONE
  7. TRAMADOL [Suspect]
     Active Substance: TRAMADOL

REACTIONS (1)
  - Drug ineffective [Unknown]
